FAERS Safety Report 21618547 (Version 1)
Quarter: 2022Q4

REPORT INFORMATION
  Report Type: Spontaneous
  Country: FR (occurrence: FR)
  Receive Date: 20221119
  Receipt Date: 20221119
  Transmission Date: 20230113
  Serious: Yes (Death)
  Sender: FDA-Public Use
  Company Number: FR-002147023-NVSC2022FR260131

PATIENT
  Age: 8 Month
  Sex: Female
  Weight: 6.97 kg

DRUGS (1)
  1. ACETAMINOPHEN [Suspect]
     Active Substance: ACETAMINOPHEN
     Indication: Product used for unknown indication
     Dosage: UNK, 4MG/L
     Route: 065

REACTIONS (1)
  - Sudden infant death syndrome [Fatal]
